FAERS Safety Report 12650480 (Version 1)
Quarter: 2016Q3

REPORT INFORMATION
  Report Type: Spontaneous
  Country: US (occurrence: US)
  Receive Date: 20160815
  Receipt Date: 20160815
  Transmission Date: 20161109
  Serious: Yes (Other)
  Sender: FDA-Public Use
  Company Number: GXBR2016US002516

PATIENT
  Age: 17 Year
  Sex: Male
  Weight: 56.69 kg

DRUGS (4)
  1. CLINDAMYCIN [Concomitant]
     Active Substance: CLINDAMYCIN\CLINDAMYCIN PHOSPHATE
     Indication: PRODUCT USED FOR UNKNOWN INDICATION
     Dosage: UNK DF, Q8H
     Route: 042
  2. CEFEPIME [Suspect]
     Active Substance: CEFEPIME HYDROCHLORIDE
     Indication: OSTEOMYELITIS
     Dosage: 2 G, Q12H
     Route: 041
     Dates: start: 20160714, end: 20160804
  3. STERILE WATER [Suspect]
     Active Substance: WATER
     Indication: OSTEOMYELITIS
     Dosage: UNK ML, UNK
     Route: 041
     Dates: start: 20160714, end: 20160804
  4. FLORASTOR [Concomitant]
     Active Substance: SACCHAROMYCES CEREVISIAE
     Indication: PRODUCT USED FOR UNKNOWN INDICATION
     Dosage: 500 MG, QD
     Route: 065
     Dates: start: 20160721

REACTIONS (4)
  - Ocular hyperaemia [Unknown]
  - Pyrexia [Unknown]
  - Rash [Unknown]
  - Chills [Unknown]

NARRATIVE: CASE EVENT DATE: 20160802
